FAERS Safety Report 8407214-4 (Version None)
Quarter: 2012Q2

REPORT INFORMATION
  Report Type: 
  Country: None (occurrence: None)
  Receive Date: 20120323
  Receipt Date: 20110628
  Transmission Date: 20120825
  Serious: Yes (Disabling, Other)
  Sender: FDA-Public Use
  Company Number: 163-21880-11050305

PATIENT
  Age: 62 Year
  Sex: Male

DRUGS (21)
  1. LASIX [Concomitant]
  2. FLOMAX [Concomitant]
  3. CRESTOR [Concomitant]
  4. ALTACE [Concomitant]
  5. SOTALOL HCL [Concomitant]
  6. NITRO (GLYCERYL TRINTIRATE) [Concomitant]
  7. DECADRON [Concomitant]
  8. METHADONE HCL [Concomitant]
  9. ULTRAM [Concomitant]
  10. ROXICODONE [Concomitant]
  11. NEURONTIN [Concomitant]
  12. MICRONASE [Concomitant]
  13. REVLIMID [Suspect]
     Indication: MULTIPLE MYELOMA
     Dosage: SEE IMAGE
     Route: 048
     Dates: start: 20110128
  14. REVLIMID [Suspect]
     Indication: MULTIPLE MYELOMA
     Dosage: SEE IMAGE
     Route: 048
     Dates: start: 20110524
  15. REVLIMID [Suspect]
     Indication: MULTIPLE MYELOMA
     Dosage: SEE IMAGE
     Route: 048
     Dates: start: 20100719, end: 20101118
  16. ZOVIRAX [Concomitant]
  17. JANUVIA [Concomitant]
  18. ASPIRIN [Concomitant]
  19. PLAVIX [Concomitant]
  20. PERCOCET 5/325 (PERCOCET-5) [Concomitant]
  21. IRON-DEXTRAN COMPLEX INJ [Concomitant]

REACTIONS (2)
  - DYSPNOEA [None]
  - ANGINA PECTORIS [None]
